FAERS Safety Report 9239674 (Version 2)
Quarter: 2013Q3

REPORT INFORMATION
  Report Type: Report from Study
  Country: JP (occurrence: JP)
  Receive Date: 20130418
  Receipt Date: 20130723
  Transmission Date: 20140515
  Serious: Yes (Other)
  Sender: FDA-Public Use
  Company Number: JP-VERTEX PHARMACEUTICALS INC.-2013-005043

PATIENT
  Age: 24 Year
  Sex: Female

DRUGS (5)
  1. VX-950 (TELAPREVIR) [Suspect]
     Indication: CHRONIC HEPATITIS C
     Dosage: 1500 MG, QD
     Route: 048
     Dates: start: 20120723, end: 20121015
  2. PEGINTRON [Suspect]
     Indication: CHRONIC HEPATITIS C
     Dosage: 1.5 ?G/KG,QW
     Route: 058
     Dates: start: 20120723, end: 20120729
  3. PEGINTRON [Suspect]
     Dosage: 1.21 ?G/KG, QW
     Route: 058
     Dates: start: 20120730, end: 20121015
  4. REBETOL [Suspect]
     Indication: CHRONIC HEPATITIS C
     Dosage: 400 MG, QD
     Route: 048
     Dates: start: 20120723, end: 20120930
  5. REBETOL [Suspect]
     Dosage: 200 MG, QD
     Route: 048
     Dates: start: 20121001

REACTIONS (1)
  - Neutrophil count decreased [Recovered/Resolved]
